FAERS Safety Report 23639646 (Version 3)
Quarter: 2024Q4

REPORT INFORMATION
  Report Type: Spontaneous
  Country: IN (occurrence: IN)
  Receive Date: 20240316
  Receipt Date: 20241105
  Transmission Date: 20250114
  Serious: Yes (Hospitalization, Other)
  Sender: TORRENT PHARMA INC.
  Company Number: IN-TORRENT-00003489

PATIENT
  Age: 50 Year
  Sex: Male

DRUGS (5)
  1. OLANZAPINE [Suspect]
     Active Substance: OLANZAPINE
     Indication: Delusional disorder, unspecified type
     Dosage: 20 MG/DAY
     Route: 065
  2. LEVOTHYROXINE [Concomitant]
     Active Substance: LEVOTHYROXINE
     Indication: Product used for unknown indication
     Dosage: 150 MCG OD
     Route: 065
  3. NITRAZEPAM [Concomitant]
     Active Substance: NITRAZEPAM
     Indication: Sleep disorder
     Dosage: 10 MG/DAY
     Route: 065
  4. PHENERGAN [Concomitant]
     Active Substance: PROMETHAZINE HYDROCHLORIDE
     Indication: Product used for unknown indication
     Dosage: 10 MG/DAY
     Route: 065
  5. TRIHEXYPHENIDYL [Concomitant]
     Active Substance: TRIHEXYPHENIDYL
     Indication: Extrapyramidal disorder
     Dosage: 2 MG/DAY
     Route: 065

REACTIONS (1)
  - Tardive dyskinesia [Recovered/Resolved]
